FAERS Safety Report 20662092 (Version 2)
Quarter: 2025Q1

REPORT INFORMATION
  Report Type: Other
  Country: PT (occurrence: PT)
  Receive Date: 20220401
  Receipt Date: 20250115
  Transmission Date: 20250408
  Serious: Yes (Other)
  Sender: CELLTRION
  Company Number: PT-CELLTRION INC.-2022PT003393

PATIENT

DRUGS (3)
  1. TRASTUZUMAB [Suspect]
     Active Substance: TRASTUZUMAB
     Indication: HER2 positive breast cancer
     Route: 065
     Dates: start: 20210908
  2. CAPECITABINE [Suspect]
     Active Substance: CAPECITABINE
     Indication: HER2 positive breast cancer
     Route: 065
     Dates: start: 20210908
  3. TUKYSA [Suspect]
     Active Substance: TUCATINIB
     Indication: HER2 positive breast cancer
     Route: 065
     Dates: start: 20210908

REACTIONS (8)
  - Hyperbilirubinaemia [Unknown]
  - Renal failure [Recovering/Resolving]
  - Dehydration [Recovering/Resolving]
  - Onycholysis [Unknown]
  - Transaminases increased [Unknown]
  - Palmar-plantar erythrodysaesthesia syndrome [Unknown]
  - Anaemia [Unknown]
  - Diarrhoea [Unknown]
